FAERS Safety Report 16103735 (Version 1)
Quarter: 2019Q1

REPORT INFORMATION
  Report Type: Spontaneous
  Country: US (occurrence: US)
  Receive Date: 20190219
  Receipt Date: 20190219
  Transmission Date: 20190418
  Serious: No
  Sender: FDA-Public Use
  Company Number: None

PATIENT
  Age: 76 Year
  Sex: Male
  Weight: 63.5 kg

DRUGS (1)
  1. ABIRATERONE 250MG [Suspect]
     Active Substance: ABIRATERONE
     Indication: PROSTATE CANCER
     Route: 048
     Dates: start: 20190213

REACTIONS (5)
  - Treatment noncompliance [None]
  - Blood potassium decreased [None]
  - Weight increased [None]
  - Oedema [None]
  - Fluid retention [None]

NARRATIVE: CASE EVENT DATE: 20190213
